FAERS Safety Report 7606932-5 (Version None)
Quarter: 2011Q3

REPORT INFORMATION
  Report Type: 
  Country: None (occurrence: None)
  Receive Date: 20110713
  Receipt Date: 20110707
  Transmission Date: 20111222
  Serious: Yes (Other)
  Sender: FDA-Public Use
  Company Number: GB-PFIZER INC-2011155944

PATIENT
  Age: 52 Year
  Sex: Male

DRUGS (1)
  1. PHENYTOIN SODIUM [Suspect]

REACTIONS (4)
  - TACHYCARDIA [None]
  - HYPERTENSION [None]
  - INCORRECT ROUTE OF DRUG ADMINISTRATION [None]
  - CONVULSION [None]
